FAERS Safety Report 23247176 (Version 1)
Quarter: 2023Q4

REPORT INFORMATION
  Report Type: Spontaneous
  Country: GB (occurrence: GB)
  Receive Date: 20231130
  Receipt Date: 20231130
  Transmission Date: 20240110
  Serious: Yes (Other)
  Sender: FDA-Public Use
  Company Number: None

PATIENT
  Sex: Female

DRUGS (1)
  1. GLATIRAMER ACETATE [Suspect]
     Active Substance: GLATIRAMER ACETATE
     Indication: Multiple sclerosis
     Dosage: 40 MILLIGRAM, 3XW (40MG THREE TIMES A WEEK)
     Route: 065
     Dates: start: 20220201

REACTIONS (7)
  - Throat irritation [Recovered/Resolved]
  - Swelling face [Recovered/Resolved]
  - Blindness [Recovered/Resolved]
  - Frequent bowel movements [Recovered/Resolved]
  - Muscular weakness [Recovered/Resolved]
  - Erythema [Recovered/Resolved]
  - Dyspnoea [Recovered/Resolved]

NARRATIVE: CASE EVENT DATE: 20231117
